FAERS Safety Report 24335136 (Version 1)
Quarter: 2024Q3

REPORT INFORMATION
  Report Type: Report from Study
  Country: CA (occurrence: CA)
  Receive Date: 20240918
  Receipt Date: 20240918
  Transmission Date: 20241017
  Serious: Yes (Other)
  Sender: SAMSUNG BIOEPIS
  Company Number: CA-SAMSUNG BIOEPIS-SB-2024-27548

PATIENT
  Age: 39 Year
  Sex: Female

DRUGS (1)
  1. RENFLEXIS [Suspect]
     Active Substance: INFLIXIMAB-ABDA
     Indication: Colitis ulcerative
     Route: 042
     Dates: start: 20200124

REACTIONS (6)
  - Pyoderma gangrenosum [Recovering/Resolving]
  - Vasculitis [Recovering/Resolving]
  - COVID-19 [Recovered/Resolved]
  - Asthma [Recovered/Resolved]
  - Breast feeding [Unknown]
  - Off label use [Unknown]

NARRATIVE: CASE EVENT DATE: 20230319
